FAERS Safety Report 5064450-5 (Version None)
Quarter: 2006Q3

REPORT INFORMATION
  Report Type: 
  Country: None (occurrence: None)
  Receive Date: 20060728
  Receipt Date: 20060614
  Transmission Date: 20061208
  Serious: Yes (Hospitalization, Other)
  Sender: FDA-Public Use
  Company Number: US-BRISTOL-MYERS SQUIBB COMPANY-13413083

PATIENT
  Age: 72 Year
  Sex: Female

DRUGS (1)
  1. DEFINITY [Suspect]
     Indication: STRESS ECHOCARDIOGRAM
     Route: 040
     Dates: start: 20060612

REACTIONS (5)
  - BLOOD PRESSURE DECREASED [None]
  - ERYTHEMA [None]
  - EYE SWELLING [None]
  - OCULAR HYPERAEMIA [None]
  - SWELLING FACE [None]
